FAERS Safety Report 11801518 (Version 2)
Quarter: 2019Q2

REPORT INFORMATION
  Report Type: Report from Study
  Country: JP (occurrence: JP)
  Receive Date: 20151204
  Receipt Date: 20190528
  Transmission Date: 20190711
  Serious: Yes (Hospitalization, Other)
  Sender: FDA-Public Use
  Company Number: JP-009507513-1404JPN011346

PATIENT
  Age: 24 Year
  Sex: Female
  Weight: 54 kg

DRUGS (25)
  1. LACTEC [Concomitant]
     Active Substance: CALCIUM CHLORIDE ANHYDROUS\POTASSIUM CHLORIDE\SODIUM CHLORIDE\SODIUM LACTATE
     Indication: HYPERINSULINAEMIC HYPOGLYCAEMIA
     Route: 042
     Dates: start: 20091005, end: 20091005
  2. VITAMEDIN [Concomitant]
     Active Substance: CYANOCOBALAMIN\PYRIDOXINE HYDROCHLORIDE\THIAMINE
     Indication: HYPERINSULINAEMIC HYPOGLYCAEMIA
     Route: 042
     Dates: start: 20091005, end: 20091005
  3. GLUCOSE [Concomitant]
     Active Substance: DEXTROSE
     Indication: HYPERINSULINAEMIC HYPOGLYCAEMIA
     Route: 048
     Dates: start: 20091005, end: 20091005
  4. GLUCOSE [Concomitant]
     Active Substance: DEXTROSE
     Dosage: 1500 MILLILITER, BIM
     Route: 042
     Dates: start: 20091009, end: 20091009
  5. PURSENNIDE (SENNA ALEXANDRINA LEAF) [Concomitant]
     Active Substance: SENNA LEAF
     Indication: CONSTIPATION
     Dosage: 24 MILLIGRAM, BIM
     Route: 048
     Dates: start: 20091017, end: 20091102
  6. LOXONIN [Concomitant]
     Active Substance: LOXOPROFEN SODIUM
     Route: 065
     Dates: start: 20091021, end: 20091022
  7. DIAZOXIDE CAPSULES 25 MG ^MSD^ [Suspect]
     Active Substance: DIAZOXIDE
     Dosage: 375 MILLIGRAM, BIM
     Route: 048
     Dates: start: 20091014, end: 20091014
  8. GLUCOSE [Concomitant]
     Active Substance: DEXTROSE
     Indication: HYPERINSULINAEMIC HYPOGLYCAEMIA
     Dosage: 20 MILLILITER, BIM
     Route: 042
     Dates: start: 20091005, end: 20091005
  9. GLUCOSE [Concomitant]
     Active Substance: DEXTROSE
     Dosage: 1000 MILLILITER, BIM
     Route: 042
     Dates: start: 20091007, end: 20091008
  10. GLUCOSE [Concomitant]
     Active Substance: DEXTROSE
     Dosage: 40 MILLILITER, BIM
     Route: 048
     Dates: start: 20091006, end: 20091006
  11. GLUCOSE [Concomitant]
     Active Substance: DEXTROSE
     Dosage: UNK
     Route: 042
     Dates: start: 20091007, end: 20091022
  12. CALONAL [Concomitant]
     Active Substance: ACETAMINOPHEN
     Indication: HEADACHE
     Route: 048
     Dates: start: 20091019, end: 20091116
  13. TAKEPRON [Concomitant]
     Active Substance: LANSOPRAZOLE
     Dosage: 2 DOSAGE FORM, BIM
     Route: 048
     Dates: start: 20091024, end: 20091105
  14. DIAZOXIDE CAPSULES 25 MG ^MSD^ [Suspect]
     Active Substance: DIAZOXIDE
     Dosage: 250 MILLIGRAM, BID
     Route: 048
     Dates: start: 20091015, end: 20091015
  15. GLUCOSE [Concomitant]
     Active Substance: DEXTROSE
     Dosage: 40 MILLILITER, BIM
     Route: 042
     Dates: start: 20091006, end: 20091006
  16. GLUCOSE [Concomitant]
     Active Substance: DEXTROSE
     Indication: HYPERINSULINAEMIC HYPOGLYCAEMIA
     Route: 048
     Dates: start: 20091009, end: 20091009
  17. GLUCOSE [Concomitant]
     Active Substance: DEXTROSE
     Dosage: UNK
     Route: 048
     Dates: start: 20091010, end: 20091119
  18. SANDOSTATIN [Concomitant]
     Active Substance: OCTREOTIDE ACETATE
     Indication: HYPERINSULINAEMIC HYPOGLYCAEMIA
     Dosage: 100 MICROGRAM, BIM
     Route: 058
     Dates: start: 20091009, end: 20091009
  19. LASIX [Concomitant]
     Active Substance: FUROSEMIDE
     Indication: OEDEMA
     Dosage: 20 MILLIGRAM, BIM
     Route: 048
     Dates: start: 20091020, end: 20091027
  20. PREDONINE [Concomitant]
     Active Substance: PREDNISOLONE
     Dosage: 6 DOSAGE FORM, BIM
     Route: 065
     Dates: start: 20091022, end: 20091028
  21. DIAZOXIDE CAPSULES 25 MG ^MSD^ [Suspect]
     Active Substance: DIAZOXIDE
     Indication: HYPERINSULINAEMIC HYPOGLYCAEMIA
     Route: 048
     Dates: start: 20091010, end: 20091013
  22. PRIMPERAN [Concomitant]
     Active Substance: METOCLOPRAMIDE HYDROCHLORIDE
     Indication: NAUSEA
     Dosage: 10 MILLIGRAM, BIM
     Route: 042
     Dates: start: 20091017, end: 20091021
  23. DIAZOXIDE CAPSULES 25 MG ^MSD^ [Suspect]
     Active Substance: DIAZOXIDE
     Dosage: 625 MILLIGRAM, BIM
     Route: 048
     Dates: start: 20091016, end: 20091021
  24. LAXOBERON [Concomitant]
     Active Substance: SODIUM PICOSULFATE
     Indication: CONSTIPATION
     Route: 048
     Dates: start: 20091019, end: 20091119
  25. GLUCAGON. [Concomitant]
     Active Substance: GLUCAGON
     Indication: HYPERINSULINAEMIC HYPOGLYCAEMIA
     Route: 042
     Dates: start: 20091006, end: 20091006

REACTIONS (7)
  - Liver disorder [Recovered/Resolved]
  - Constipation [Unknown]
  - Pancytopenia [Recovered/Resolved]
  - Nausea [Unknown]
  - Pyrexia [Recovered/Resolved]
  - Oedema [Unknown]
  - Headache [Unknown]

NARRATIVE: CASE EVENT DATE: 20091017
